FAERS Safety Report 7751721-4 (Version None)
Quarter: 2011Q3

REPORT INFORMATION
  Report Type: 
  Country: None (occurrence: None)
  Receive Date: 20110915
  Receipt Date: 20110907
  Transmission Date: 20111222
  Serious: Yes (Death, Hospitalization)
  Sender: FDA-Public Use
  Company Number: US-BIOGENIDEC-2011BI034532

PATIENT
  Age: 41 Year
  Sex: Male

DRUGS (1)
  1. TYSABRI [Suspect]
     Indication: MULTIPLE SCLEROSIS
     Route: 042
     Dates: start: 20070808, end: 20101007

REACTIONS (5)
  - SEPTIC SHOCK [None]
  - URINARY TRACT INFECTION [None]
  - BACTERIAL INFECTION [None]
  - PNEUMONIA ASPIRATION [None]
  - OSTEOMYELITIS [None]
